FAERS Safety Report 6677942-X (Version None)
Quarter: 2010Q2

REPORT INFORMATION
  Report Type: 
  Country: None (occurrence: None)
  Receive Date: 20100412
  Receipt Date: 20100330
  Transmission Date: 20101027
  Serious: Yes (Other)
  Sender: FDA-Public Use
  Company Number: US-ELI_LILLY_AND_COMPANY-US201004001461

PATIENT
  Sex: Male

DRUGS (5)
  1. STRATTERA [Suspect]
     Indication: ATTENTION DEFICIT/HYPERACTIVITY DISORDER
     Dosage: 1 D/F, DAILY (1/D)
     Dates: start: 20091101
  2. STRATTERA [Suspect]
     Dosage: 80 MG, DAILY (1/D)
     Dates: end: 20100221
  3. CLONIDINE [Concomitant]
  4. DESMOPRESIN [Concomitant]
  5. CONCERTA [Concomitant]

REACTIONS (7)
  - ABDOMINAL PAIN [None]
  - ALANINE AMINOTRANSFERASE INCREASED [None]
  - BLOOD ALKALINE PHOSPHATASE INCREASED [None]
  - DRUG INTERACTION [None]
  - NAUSEA [None]
  - OTITIS MEDIA [None]
  - PNEUMONIA PRIMARY ATYPICAL [None]
